FAERS Safety Report 23558508 (Version 1)
Quarter: 2024Q1

REPORT INFORMATION
  Report Type: Spontaneous
  Country: US (occurrence: US)
  Receive Date: 20240223
  Receipt Date: 20240223
  Transmission Date: 20240410
  Serious: No
  Sender: FDA-Public Use
  Company Number: US-BIOGEN-2021BI01024965

PATIENT
  Sex: Male

DRUGS (2)
  1. TECFIDERA [Suspect]
     Active Substance: DIMETHYL FUMARATE
     Indication: Multiple sclerosis
     Route: 050
     Dates: start: 20150122
  2. BENADRYL [Suspect]
     Active Substance: DIPHENHYDRAMINE HYDROCHLORIDE
     Indication: Product used for unknown indication
     Route: 050

REACTIONS (5)
  - Food allergy [Not Recovered/Not Resolved]
  - Sensitive skin [Not Recovered/Not Resolved]
  - Somnolence [Unknown]
  - Urticaria [Not Recovered/Not Resolved]
  - Flushing [Not Recovered/Not Resolved]
